FAERS Safety Report 5059809-6 (Version None)
Quarter: 2006Q3

REPORT INFORMATION
  Report Type: 
  Country: None (occurrence: None)
  Receive Date: 20060724
  Receipt Date: 20060720
  Transmission Date: 20061208
  Serious: Yes (Death)
  Sender: FDA-Public Use
  Company Number: 455246

PATIENT
  Age: 68 Year
  Sex: Male

DRUGS (6)
  1. ARTIST [Suspect]
     Indication: SINUS TACHYCARDIA
     Dosage: 2.5MG PER DAY
     Route: 048
     Dates: start: 20051111, end: 20051111
  2. ETIZOLAM [Suspect]
     Indication: SINUS TACHYCARDIA
     Dosage: .5MG PER DAY
     Route: 048
     Dates: start: 20051111, end: 20051111
  3. PILSICAINIDE HYDROCHLORIDE [Suspect]
     Indication: ATRIAL FIBRILLATION
     Dosage: 100MG PER DAY
     Route: 048
     Dates: start: 20051111, end: 20051111
  4. HEPARIN [Concomitant]
     Indication: DRUG USE FOR UNKNOWN INDICATION
     Route: 065
     Dates: start: 20051111, end: 20051111
  5. VASOLAN [Concomitant]
     Indication: DRUG USE FOR UNKNOWN INDICATION
     Route: 065
     Dates: start: 20051111, end: 20051111
  6. ACETAMINOPHEN [Concomitant]
     Indication: DRUG USE FOR UNKNOWN INDICATION
     Route: 065
     Dates: start: 20051111, end: 20051111

REACTIONS (3)
  - ANAPHYLACTIC SHOCK [None]
  - CARDIOGENIC SHOCK [None]
  - SHOCK [None]
